FAERS Safety Report 4356485-2 (Version None)
Quarter: 2004Q2

REPORT INFORMATION
  Report Type: 
  Country: None (occurrence: None)
  Receive Date: 20040512
  Receipt Date: 20031202
  Transmission Date: 20050107
  Serious: Yes (Hospitalization, Other)
  Sender: FDA-Public Use
  Company Number: 200320417US

PATIENT
  Sex: Female
  Weight: 73 kg

DRUGS (7)
  1. ARAVA [Suspect]
     Indication: RHEUMATOID ARTHRITIS
     Route: 048
     Dates: start: 20010508
  2. PLAQUENIL [Concomitant]
  3. FLEXERIL [Concomitant]
  4. VIOXX [Concomitant]
  5. FOLIC ACID [Concomitant]
     Dosage: DOSE: UNKNOWN
  6. METHOTREXATE [Concomitant]
     Dosage: DOSE: 12-17.5
  7. ROBAXIN [Concomitant]
     Dosage: DOSE: UNKNOWN

REACTIONS (13)
  - ANTINUCLEAR ANTIBODY POSITIVE [None]
  - ARTHRALGIA [None]
  - CHROMATURIA [None]
  - CHRONIC HEPATITIS [None]
  - HEPATIC NECROSIS [None]
  - HEPATITIS VIRAL [None]
  - HEPATOMEGALY [None]
  - INFLUENZA LIKE ILLNESS [None]
  - JAUNDICE [None]
  - MYALGIA [None]
  - PHARYNGEAL ERYTHEMA [None]
  - PYREXIA [None]
  - WEIGHT DECREASED [None]
